FAERS Safety Report 6173139-0 (Version None)
Quarter: 2009Q2

REPORT INFORMATION
  Report Type: 
  Country: None (occurrence: None)
  Receive Date: 20090430
  Receipt Date: 20090422
  Transmission Date: 20091009
  Serious: Yes (Hospitalization, Other)
  Sender: FDA-Public Use
  Company Number: CA-PFIZER INC-2009202309

PATIENT

DRUGS (1)
  1. NORVASC [Suspect]

REACTIONS (4)
  - CELLULITIS [None]
  - INTESTINAL ISCHAEMIA [None]
  - OEDEMA PERIPHERAL [None]
  - RASH [None]
